FAERS Safety Report 9529027 (Version 1)
Quarter: 2013Q1

REPORT INFORMATION
  Report Type: Spontaneous
  Country: US (occurrence: None)
  Receive Date: 20130318
  Receipt Date: 20130318
  Transmission Date: 20140127
  Serious: Yes (Life-Threatening, Other)
  Sender: FDA-Public Use
  Company Number: 163-12072180

PATIENT
  Age: 68 Year
  Sex: Female

DRUGS (6)
  1. ABRAXANE [Suspect]
     Indication: OVARIAN CANCER
     Route: 042
     Dates: start: 20120614, end: 20120712
  2. COUMADIN (WARFARIN SODIUM) (UNKNOWN) [Concomitant]
  3. CARVEDILOL (CARVEDILOL) (UNKNOWN) [Concomitant]
  4. HCTZ (HYDROCHLOROTHIAZIDE)(UNKNOWN) [Concomitant]
  5. ZOFRAN [Suspect]
  6. AVASTIN (BEVACIZUMAB) (UNKNOWN) [Concomitant]

REACTIONS (4)
  - Skin reaction [None]
  - Rash maculo-papular [None]
  - Urticaria [None]
  - Pruritus [None]
